FAERS Safety Report 25232121 (Version 1)
Quarter: 2025Q2

REPORT INFORMATION
  Report Type: Spontaneous
  Country: IT (occurrence: IT)
  Receive Date: 20250423
  Receipt Date: 20250423
  Transmission Date: 20250717
  Serious: Yes (Hospitalization)
  Sender: SANDOZ
  Company Number: IT-MLMSERVICE-20250403-PI468613-00029-1

PATIENT
  Age: 51 Year
  Sex: Female

DRUGS (2)
  1. ACETAMINOPHEN [Suspect]
     Active Substance: ACETAMINOPHEN
     Indication: Pyrexia
     Dosage: NONTHERAPEUTIC DOSES OF PARACETAMOL
     Route: 065
  2. ACETAMINOPHEN [Suspect]
     Active Substance: ACETAMINOPHEN
     Indication: Cough

REACTIONS (9)
  - Anaemia [Recovered/Resolved]
  - Pleural effusion [Recovered/Resolved]
  - Gallbladder oedema [Recovered/Resolved]
  - Renal cortical necrosis [Recovered/Resolved]
  - Metabolic acidosis [Recovered/Resolved]
  - Hepatic necrosis [Recovered/Resolved]
  - Thrombocytopenia [Recovered/Resolved]
  - Toxicity to various agents [Recovered/Resolved]
  - Overdose [Recovered/Resolved]
